FAERS Safety Report 7305545-2 (Version None)
Quarter: 2011Q1

REPORT INFORMATION
  Report Type: 
  Country: None (occurrence: None)
  Receive Date: 20110222
  Receipt Date: 20101104
  Transmission Date: 20110831
  Serious: No
  Sender: FDA-Public Use
  Company Number: US-MYLANLABS-2010S1019145

PATIENT
  Age: 58 Year
  Sex: Male

DRUGS (4)
  1. METOPROLOL [Concomitant]
     Indication: CARDIAC DISORDER
     Route: 048
  2. MULTIVITAMIN [Concomitant]
  3. ALPRAZOLAM [Suspect]
     Indication: ANXIETY
     Route: 048
     Dates: start: 20030101
  4. CHINESE HERBS [Concomitant]
     Route: 048

REACTIONS (6)
  - DRUG EFFECT DECREASED [None]
  - WITHDRAWAL SYNDROME [None]
  - PAIN [None]
  - ANXIETY [None]
  - HEADACHE [None]
  - DRUG DEPENDENCE [None]
